FAERS Safety Report 17992029 (Version 2)
Quarter: 2020Q3

REPORT INFORMATION
  Report Type: Spontaneous
  Country: US (occurrence: US)
  Receive Date: 20200708
  Receipt Date: 20200714
  Transmission Date: 20201103
  Serious: No
  Sender: FDA-Public Use
  Company Number: US-AMGEN INC.-USASP2020108561

PATIENT
  Age: 60 Year
  Sex: Female

DRUGS (1)
  1. AIMOVIG [Suspect]
     Active Substance: ERENUMAB-AOOE
     Indication: PRODUCT USED FOR UNKNOWN INDICATION
     Dosage: 140 MILLIGRAM
     Route: 065
     Dates: start: 2019

REACTIONS (5)
  - Injury associated with device [Recovering/Resolving]
  - Device use error [Unknown]
  - Injection site discolouration [Recovering/Resolving]
  - Nasal congestion [Not Recovered/Not Resolved]
  - Accidental exposure to product [Unknown]

NARRATIVE: CASE EVENT DATE: 20200703
